FAERS Safety Report 10430925 (Version 1)
Quarter: 2014Q3

REPORT INFORMATION
  Report Type: Spontaneous
  Country: US (occurrence: None)
  Receive Date: 20140902
  Receipt Date: 20140902
  Transmission Date: 20150326
  Serious: Yes (Hospitalization)
  Sender: FDA-Public Use
  Company Number: IMP_07878_2014

PATIENT
  Age: 53 Year
  Sex: Male

DRUGS (2)
  1. BENZTROPINE [Suspect]
     Active Substance: BENZTROPINE
     Indication: PRODUCT USED FOR UNKNOWN INDICATION
     Dosage: NOT THE PRESCRIBED AMOUNT
  2. VALPROIC ACID 500 MG [Suspect]
     Active Substance: VALPROIC ACID
     Indication: PRODUCT USED FOR UNKNOWN INDICATION

REACTIONS (6)
  - Toxicity to various agents [None]
  - Lethargy [None]
  - Intentional overdose [None]
  - Agitation [None]
  - Suicide attempt [None]
  - Nephrogenic diabetes insipidus [None]
